FAERS Safety Report 9231457 (Version 3)
Quarter: 2013Q2

REPORT INFORMATION
  Report Type: Spontaneous
  Country: US (occurrence: US)
  Receive Date: 20130415
  Receipt Date: 20130521
  Transmission Date: 20140414
  Serious: Yes (Death, Hospitalization)
  Sender: FDA-Public Use
  Company Number: US-GLAXOSMITHKLINE-A0992809A

PATIENT
  Age: 32 Year
  Sex: Female

DRUGS (1)
  1. FLOLAN [Suspect]
     Indication: PULMONARY ARTERIAL HYPERTENSION
     Dosage: 8NGKM CONTINUOUS
     Route: 042
     Dates: start: 20060105

REACTIONS (7)
  - Hepatic failure [Recovering/Resolving]
  - Renal failure [Unknown]
  - Dialysis [Unknown]
  - Death [Fatal]
  - Headache [Unknown]
  - Infusion site pain [Unknown]
  - Malaise [Unknown]
